FAERS Safety Report 7148749-4 (Version None)
Quarter: 2010Q4

REPORT INFORMATION
  Report Type: 
  Country: None (occurrence: None)
  Receive Date: 20101209
  Receipt Date: 20101207
  Transmission Date: 20110411
  Serious: Yes (Other)
  Sender: FDA-Public Use
  Company Number: CO-ROCHE-746533

PATIENT
  Sex: Female

DRUGS (1)
  1. ACTEMRA [Suspect]
     Indication: RHEUMATOID ARTHRITIS
     Dosage: LAST DOSE ON 27 OCT 2010. FORM: INFUSION.
     Route: 042
     Dates: start: 20091028, end: 20101027

REACTIONS (1)
  - CONVULSION [None]
